FAERS Safety Report 9066060 (Version 1)
Quarter: 2013Q1

REPORT INFORMATION
  Report Type: Spontaneous
  Country: US (occurrence: US)
  Receive Date: 20130201
  Receipt Date: 20130201
  Transmission Date: 20140127
  Serious: Yes (Hospitalization)
  Sender: FDA-Public Use
  Company Number: US-AMGEN-USASP2013005333

PATIENT
  Age: 15 Year
  Sex: Female

DRUGS (2)
  1. ENBREL [Suspect]
     Indication: PSORIASIS
     Dosage: 50 MG, UNK
     Dates: start: 2009, end: 2009
  2. HUMIRA [Concomitant]
     Dosage: UNK

REACTIONS (3)
  - Pyrexia [Recovered/Resolved]
  - Skin ulcer [Recovered/Resolved]
  - Skin plaque [Not Recovered/Not Resolved]
